FAERS Safety Report 6667991-X (Version None)
Quarter: 2010Q2

REPORT INFORMATION
  Report Type: 
  Country: None (occurrence: None)
  Receive Date: 20100405
  Receipt Date: 20100323
  Transmission Date: 20101027
  Serious: Yes (Death, Hospitalization)
  Sender: FDA-Public Use
  Company Number: CA-ELI_LILLY_AND_COMPANY-CA201003006388

PATIENT
  Age: 80 Year
  Sex: Female

DRUGS (17)
  1. FORTEO [Suspect]
     Indication: OSTEOPOROSIS
     Dosage: 20 UG, DAILY (1/D)
     Dates: start: 20081125, end: 20100301
  2. SENOKOT [Concomitant]
  3. HYDROMORPHONE HCL [Concomitant]
  4. ACETAMINOPHEN [Concomitant]
  5. LIPITOR [Concomitant]
  6. ASPIRIN [Concomitant]
  7. CITALOPRAM HYDROBROMIDE [Concomitant]
  8. EZETROL [Concomitant]
  9. OMEPRAZOLE [Concomitant]
  10. LISINOPRIL [Concomitant]
  11. VESICARE [Concomitant]
  12. ACTOS [Concomitant]
  13. CARVEDILOL [Concomitant]
  14. LASIX [Concomitant]
  15. VITAMIN D [Concomitant]
  16. VITAMIN B-12 [Concomitant]
  17. CALCIUM [Concomitant]

REACTIONS (4)
  - CARDIAC DISORDER [None]
  - CONDITION AGGRAVATED [None]
  - LUNG DISORDER [None]
  - MALAISE [None]
